FAERS Safety Report 8517511-X (Version None)
Quarter: 2012Q3

REPORT INFORMATION
  Report Type: 
  Country: None (occurrence: None)
  Receive Date: 20120718
  Receipt Date: 20120710
  Transmission Date: 20120928
  Serious: Yes (Hospitalization, Other)
  Sender: FDA-Public Use
  Company Number: JP-PFIZER INC-2012102821

PATIENT
  Sex: Male
  Weight: 55 kg

DRUGS (7)
  1. ACTOS [Concomitant]
     Dosage: 15 MG, 1X/DAY
     Route: 048
  2. RABEPRAZOLE SODIUM [Concomitant]
     Dosage: 10 MG, 1X/DAY
     Route: 048
  3. AZULFIDINE [Suspect]
     Indication: SJOGREN'S SYNDROME
     Dosage: 1000 MG, 1X/DAY
     Route: 048
     Dates: start: 20120329, end: 20120417
  4. AZULFIDINE [Suspect]
     Indication: ARTHROPATHY
  5. LOBU [Concomitant]
     Dosage: 180 MG, 1X/DAY
     Route: 048
  6. AZULFIDINE [Suspect]
     Indication: SCLERODERMA
     Dosage: 500 MG, 1X/DAY
     Route: 048
     Dates: start: 20120314, end: 20120328
  7. PREDNISOLONE [Concomitant]
     Dosage: 5 MG, 1X/DAY
     Route: 048

REACTIONS (6)
  - DEEP VEIN THROMBOSIS [None]
  - PSEUDOMONAL SEPSIS [None]
  - CYTOMEGALOVIRUS INFECTION [None]
  - HISTIOCYTOSIS HAEMATOPHAGIC [None]
  - DISSEMINATED INTRAVASCULAR COAGULATION [None]
  - AGRANULOCYTOSIS [None]
